FAERS Safety Report 17250988 (Version 1)
Quarter: 2020Q1

REPORT INFORMATION
  Report Type: Spontaneous
  Country: FR (occurrence: FR)
  Receive Date: 20200109
  Receipt Date: 20200109
  Transmission Date: 20200409
  Serious: Yes (Hospitalization)
  Sender: FDA-Public Use
  Company Number: FR-TEVA-2020-FR-1164207

PATIENT
  Age: 76 Year
  Sex: Female
  Weight: 37.5 kg

DRUGS (7)
  1. AMOXICILLIN. [Suspect]
     Active Substance: AMOXICILLIN
     Indication: RESPIRATORY TRACT INFECTION
     Dosage: 3 DF
     Route: 048
     Dates: start: 201909, end: 201910
  2. AUGMENTIN [Suspect]
     Active Substance: AMOXICILLIN\CLAVULANATE POTASSIUM
     Indication: RESPIRATORY TRACT INFECTION
     Dosage: 3 DF
     Route: 048
     Dates: start: 201909, end: 201910
  3. XANAX [Concomitant]
     Active Substance: ALPRAZOLAM
     Dosage: 1 GBQ
  4. VITAMINE B1 B6 BAYER [Concomitant]
     Active Substance: PYRIDOXINE HYDROCHLORIDE\THIAMINE HYDROCHLORIDE
     Dosage: 1 DF
  5. SMECTA [Concomitant]
     Active Substance: MONTMORILLONITE
     Dosage: 3 DF
  6. CREON [Concomitant]
     Active Substance: PANCRELIPASE AMYLASE\PANCRELIPASE LIPASE\PANCRELIPASE PROTEASE
     Dosage: 6 DF
  7. IMODIUM [Concomitant]
     Active Substance: LOPERAMIDE HYDROCHLORIDE
     Dosage: 12 DF

REACTIONS (2)
  - Hepatitis cholestatic [Recovering/Resolving]
  - Jaundice [Recovering/Resolving]

NARRATIVE: CASE EVENT DATE: 201909
